FAERS Safety Report 5253932-9 (Version None)
Quarter: 2007Q1

REPORT INFORMATION
  Report Type: 
  Country: None (occurrence: None)
  Receive Date: 20070228
  Receipt Date: 20070228
  Transmission Date: 20070707
  Serious: Yes (Life-Threatening, Hospitalization)
  Sender: FDA-Public Use
  Company Number: None

PATIENT
  Age: 69 Year
  Sex: Male
  Weight: 82 kg

DRUGS (1)
  1. INSULIN, ASPART  100 UNIT/NL INJ [Suspect]
     Indication: DIABETES MELLITUS
     Dosage: 50 UNITS  QD  SQ
     Route: 058

REACTIONS (3)
  - ACCIDENTAL OVERDOSE [None]
  - HYPOGLYCAEMIC SEIZURE [None]
  - TREATMENT NONCOMPLIANCE [None]
